FAERS Safety Report 4538825-4 (Version None)
Quarter: 2004Q4

REPORT INFORMATION
  Report Type: 
  Country: None (occurrence: None)
  Receive Date: 20041222
  Receipt Date: 20041202
  Transmission Date: 20050328
  Serious: Yes (Other)
  Sender: FDA-Public Use
  Company Number: US_0412108820

PATIENT
  Age: 30 Year
  Sex: Female
  Weight: 66 kg

DRUGS (2)
  1. STRATTERA [Suspect]
     Dosage: 40 MG/1 DAY
     Dates: start: 20040301, end: 20040605
  2. WELLBUTRIN [Concomitant]

REACTIONS (18)
  - ADVERSE DRUG REACTION [None]
  - ALPHA 2 GLOBULIN INCREASED [None]
  - ANTIMITOCHONDRIAL ANTIBODY POSITIVE [None]
  - AUTOIMMUNE HEPATITIS [None]
  - BLOOD ALBUMIN DECREASED [None]
  - BLOOD IRON INCREASED [None]
  - HEPATITIS A ANTIBODY POSITIVE [None]
  - HEPATITIS ACUTE [None]
  - HEPATITIS CHOLESTATIC [None]
  - HEPATOTOXICITY [None]
  - IRON BINDING CAPACITY UNSATURATED DECREASED [None]
  - MEAN PLATELET VOLUME INCREASED [None]
  - PROTEIN TOTAL DECREASED [None]
  - RED BLOOD CELL COUNT DECREASED [None]
  - RED CELL DISTRIBUTION WIDTH INCREASED [None]
  - SERUM FERRITIN INCREASED [None]
  - UNEVALUABLE EVENT [None]
  - VIRAL INFECTION [None]
